FAERS Safety Report 11437262 (Version 1)
Quarter: 2015Q3

REPORT INFORMATION
  Report Type: Spontaneous
  Country: US (occurrence: US)
  Receive Date: 20150821
  Receipt Date: 20150821
  Transmission Date: 20151125
  Serious: No
  Sender: FDA-Public Use
  Company Number: US-ELI_LILLY_AND_COMPANY-US200703005451

PATIENT
  Sex: Female

DRUGS (7)
  1. CYMBALTA [Suspect]
     Active Substance: DULOXETINE HYDROCHLORIDE
     Indication: DIABETIC NEUROPATHY
     Dosage: 30 MG, DAILY (1/D)
     Dates: start: 20070318, end: 20070320
  2. TIAZAC [Concomitant]
     Active Substance: DILTIAZEM HYDROCHLORIDE
  3. AVAPRO [Concomitant]
     Active Substance: IRBESARTAN
  4. ALLOPURINOL. [Concomitant]
     Active Substance: ALLOPURINOL
  5. NEURONTIN [Concomitant]
     Active Substance: GABAPENTIN
     Indication: DIABETIC NEUROPATHY
  6. DIGITEK [Concomitant]
     Active Substance: DIGOXIN
     Indication: CARDIAC DISORDER
  7. HYDROCHLORZIDE [Concomitant]
     Active Substance: HYDROCHLOROTHIAZIDE
     Indication: FLUID RETENTION

REACTIONS (4)
  - Dizziness [Recovered/Resolved]
  - Fall [Recovered/Resolved]
  - Chest pain [Unknown]
  - Head injury [Recovered/Resolved]
